FAERS Safety Report 4702940-2 (Version None)
Quarter: 2005Q2

REPORT INFORMATION
  Report Type: 
  Country: None (occurrence: None)
  Receive Date: 20050629
  Receipt Date: 20050621
  Transmission Date: 20051028
  Serious: Yes (Hospitalization, Other)
  Sender: FDA-Public Use
  Company Number: US-JNJFOC-20050506177

PATIENT
  Sex: Female
  Weight: 51.26 kg

DRUGS (8)
  1. RISPERDAL CONSTA [Suspect]
     Indication: AFFECTIVE DISORDER
     Route: 030
  2. RISPERDAL CONSTA [Suspect]
     Indication: SCHIZOAFFECTIVE DISORDER
     Route: 030
  3. RISPERDAL [Suspect]
     Indication: AFFECTIVE DISORDER
     Route: 049
  4. RISPERDAL [Suspect]
     Indication: SCHIZOAFFECTIVE DISORDER
     Dosage: TAKEN IN COMBINATION WITH RISPERIDONE MICROSPHERES FOR 9 MONTHS.
     Route: 049
  5. NORVASC [Concomitant]
     Indication: HYPERTENSION
     Route: 065
  6. PREVACID [Concomitant]
     Route: 065
  7. GLUCOPHAGE [Concomitant]
     Route: 065
  8. ACTONEL [Concomitant]
     Indication: OSTEOPENIA
     Route: 065

REACTIONS (3)
  - ARRHYTHMIA [None]
  - BLOOD PROLACTIN INCREASED [None]
  - VERTIGO [None]
